FAERS Safety Report 5803883-3 (Version None)
Quarter: 2008Q3

REPORT INFORMATION
  Report Type: 
  Country: None (occurrence: None)
  Receive Date: 20080707
  Receipt Date: 20080620
  Transmission Date: 20090109
  Serious: Yes (Life-Threatening, Hospitalization)
  Sender: FDA-Public Use
  Company Number: MEDI-0006743

PATIENT
  Age: 4 Month
  Sex: Male
  Weight: 1.7 kg

DRUGS (1)
  1. SYNAGIS [Suspect]
     Indication: ANTIVIRAL PROPHYLAXIS
     Dosage: INTRAMUSCULAR
     Route: 030
     Dates: start: 20071103, end: 20071203

REACTIONS (1)
  - RESPIRATORY SYNCYTIAL VIRUS INFECTION [None]
